FAERS Safety Report 7281585-7 (Version None)
Quarter: 2011Q1

REPORT INFORMATION
  Report Type: 
  Country: None (occurrence: None)
  Receive Date: 20110208
  Receipt Date: 20110131
  Transmission Date: 20110831
  Serious: Yes (Hospitalization, Other)
  Sender: FDA-Public Use
  Company Number: PHEH2008US07166

PATIENT
  Sex: Female

DRUGS (58)
  1. ALBUTEROL [Concomitant]
     Dosage: UNK
  2. METOCLOPRAMIDE [Concomitant]
  3. TAXOTERE [Concomitant]
     Indication: BREAST CANCER
  4. ENSURE [Concomitant]
  5. DIAZEPAM [Concomitant]
  6. AMOXICILLIN [Concomitant]
  7. ARIMIDEX [Concomitant]
     Indication: BREAST CANCER
  8. AROMASIN [Concomitant]
     Indication: BREAST CANCER
  9. CHERATUSSIN [Concomitant]
  10. ZOMETA [Suspect]
     Dosage: UNK, UNK
     Dates: end: 20050201
  11. PREDNISONE [Concomitant]
     Dosage: UNK
  12. LIDOCAINE [Concomitant]
  13. FENTANYL [Concomitant]
  14. VERSED [Concomitant]
  15. NARCAN [Concomitant]
  16. METRONIDAZOLE [Concomitant]
  17. NORCO [Concomitant]
  18. TAMOXIFEN CITRATE [Concomitant]
     Indication: BREAST CANCER
  19. PERIDEX [Concomitant]
     Dosage: UNK
  20. NASAREL [Concomitant]
  21. PREVIDENT [Concomitant]
  22. TORADOL [Concomitant]
  23. ROMAZICON [Concomitant]
  24. PROAIR (FLUTICASONE PROPIONATE) [Concomitant]
  25. TEMAZEPAM [Concomitant]
  26. MEGESTROL ACETATE [Concomitant]
  27. KEFLEX [Concomitant]
     Dosage: 500 MG / QID
  28. AVELOX [Concomitant]
  29. PROCRIT                            /00909301/ [Concomitant]
  30. OXYCODONE HCL AND ACETAMINOPHEN [Concomitant]
  31. DECADRON [Concomitant]
     Dosage: UNK
  32. SINGULAIR [Concomitant]
     Dosage: UNK
  33. VICODIN [Concomitant]
     Dosage: UNK
  34. MORPHINE [Concomitant]
  35. LEVAQUIN [Concomitant]
  36. FUROSEMIDE [Concomitant]
  37. CHEMOTHERAPEUTICS NOS [Concomitant]
     Dosage: UNK
  38. PROCHLORPERAZINE [Concomitant]
  39. QVAR 40 [Concomitant]
  40. DEMEROL [Concomitant]
  41. HYDROCORTISONE [Concomitant]
     Route: 061
  42. SEREVENT [Concomitant]
  43. IXABEPILONE [Concomitant]
     Indication: BREAST CANCER
  44. LACTINEX [Concomitant]
  45. DOXYCYCLINE [Concomitant]
     Dosage: 100 MG / BID
  46. XELODA [Concomitant]
     Indication: BREAST CANCER
  47. CIPROFLOXACIN [Concomitant]
  48. ANZEMET [Concomitant]
  49. ZOFRAN [Concomitant]
  50. SOLU-MEDROL [Concomitant]
  51. ATROPINE [Concomitant]
  52. FASLODEX [Concomitant]
     Indication: BREAST CANCER
  53. FLUID/ELECTROLYTE REPLACEMENT THERAPY [Concomitant]
  54. TYLENOL-500 [Concomitant]
  55. NYSTATIN [Concomitant]
  56. CEPHALEXIN [Concomitant]
  57. LACTULOSE [Concomitant]
  58. GEMZAR [Concomitant]
     Indication: BREAST CANCER

REACTIONS (27)
  - LYMPHOEDEMA [None]
  - METASTASES TO LIVER [None]
  - PATHOLOGICAL FRACTURE [None]
  - METASTASES TO BONE [None]
  - SQUAMOUS CELL CARCINOMA OF SKIN [None]
  - CACHEXIA [None]
  - PHYSICAL DISABILITY [None]
  - ANAEMIA [None]
  - JAW FRACTURE [None]
  - METASTASES TO LUNG [None]
  - OSTEONECROSIS OF JAW [None]
  - INJURY [None]
  - PAIN [None]
  - ANXIETY [None]
  - EXOSTOSIS [None]
  - BONE DISORDER [None]
  - NEOPLASM MALIGNANT [None]
  - TOOTH ABSCESS [None]
  - ORAL PAPILLOMA [None]
  - ADRENAL INSUFFICIENCY [None]
  - POLYNEUROPATHY [None]
  - ANHEDONIA [None]
  - BREATH ODOUR [None]
  - LOOSE TOOTH [None]
  - PAROTITIS [None]
  - MENTAL DISORDER [None]
  - FISTULA DISCHARGE [None]
